FAERS Safety Report 16004062 (Version 3)
Quarter: 2019Q1

REPORT INFORMATION
  Report Type: Spontaneous
  Country: GB (occurrence: GB)
  Receive Date: 20190225
  Receipt Date: 20190320
  Transmission Date: 20190418
  Serious: Yes (Other)
  Sender: FDA-Public Use
  Company Number: GB-ACCORD-093203

PATIENT
  Age: 81 Year
  Sex: Female

DRUGS (5)
  1. RAMIPRIL. [Concomitant]
     Active Substance: RAMIPRIL
  2. DESLORATADINE. [Concomitant]
     Active Substance: DESLORATADINE
  3. ANASTROZOLE. [Suspect]
     Active Substance: ANASTROZOLE
     Indication: BREAST CANCER
     Dosage: DATE AND TIME OF LAST ADMINISTRATION: MAR-2018
     Route: 065
     Dates: start: 201801
  4. ATORVASTATIN [Concomitant]
     Active Substance: ATORVASTATIN
  5. BENDROFLUMETHIAZIDE [Concomitant]
     Active Substance: BENDROFLUMETHIAZIDE

REACTIONS (2)
  - Keratopathy [Not Recovered/Not Resolved]
  - Visual impairment [Recovered/Resolved]
